FAERS Safety Report 21770982 (Version 15)
Quarter: 2024Q4

REPORT INFORMATION
  Report Type: Spontaneous
  Country: US (occurrence: US)
  Receive Date: 20221223
  Receipt Date: 20241009
  Transmission Date: 20250115
  Serious: Yes (Hospitalization, Other)
  Sender: GLAXOSMITHKLINE
  Company Number: US-GLAXOSMITHKLINE-US2022187200

PATIENT

DRUGS (12)
  1. ZEJULA [Suspect]
     Active Substance: NIRAPARIB
     Indication: Ovarian cancer
     Dosage: 200 MG, QD
     Dates: start: 20221115
  2. ZEJULA [Suspect]
     Active Substance: NIRAPARIB
     Dosage: 200 MG, QD
     Route: 048
  3. ZEJULA [Suspect]
     Active Substance: NIRAPARIB
     Dosage: 200 MG, QD
  4. ZEJULA [Suspect]
     Active Substance: NIRAPARIB
     Dosage: 200 MG, QD
     Route: 048
  5. ZEJULA [Suspect]
     Active Substance: NIRAPARIB
     Dosage: 200 MG, QD
  6. ZEJULA [Suspect]
     Active Substance: NIRAPARIB
     Dosage: 200 MG, QD
     Route: 048
  7. ZEJULA [Suspect]
     Active Substance: NIRAPARIB
     Dosage: 200 MG, QD
     Route: 048
  8. ZEJULA [Suspect]
     Active Substance: NIRAPARIB
     Indication: Ovarian cancer
     Dosage: 200 MG, QD
  9. ZEJULA [Suspect]
     Active Substance: NIRAPARIB
     Dosage: 200 MG, QD
  10. ZEJULA [Suspect]
     Active Substance: NIRAPARIB
     Dosage: 200 MG, QD
     Route: 048
  11. ZEJULA [Suspect]
     Active Substance: NIRAPARIB
     Dosage: 200 MG, QD
     Route: 048
  12. ZEJULA [Suspect]
     Active Substance: NIRAPARIB
     Dosage: 200 MG, QD
     Route: 048

REACTIONS (23)
  - Abdominal operation [Unknown]
  - Ovarian cancer recurrent [Unknown]
  - Metastases to lymph nodes [Unknown]
  - Recurrent cancer [Unknown]
  - Heart rate increased [Not Recovered/Not Resolved]
  - Abdominal pain [Unknown]
  - Dyspnoea [Recovering/Resolving]
  - Musculoskeletal chest pain [Not Recovered/Not Resolved]
  - Hot flush [Unknown]
  - Platelet count decreased [Recovered/Resolved]
  - Constipation [Not Recovered/Not Resolved]
  - Dry mouth [Unknown]
  - Cyst [Unknown]
  - Rash [Recovered/Resolved]
  - Menopause [Unknown]
  - Musculoskeletal discomfort [Unknown]
  - Hypersensitivity [Recovered/Resolved]
  - Diarrhoea [Unknown]
  - Erythema [Recovered/Resolved]
  - Carbohydrate antigen 125 increased [Unknown]
  - Weight increased [Unknown]
  - Blood cholesterol increased [Unknown]
  - Chest pain [Unknown]
